FAERS Safety Report 4288599-X (Version None)
Quarter: 2004Q1

REPORT INFORMATION
  Report Type: 
  Country: None (occurrence: None)
  Receive Date: 20040209
  Receipt Date: 20040202
  Transmission Date: 20041129
  Serious: Yes (Other)
  Sender: FDA-Public Use
  Company Number: US-GLAXOSMITHKLINE-A0496031A

PATIENT
  Age: 32 Year
  Sex: Female

DRUGS (1)
  1. PAXIL CR [Suspect]
     Indication: DEPRESSION
     Dosage: 1TAB PER DAY
     Route: 048

REACTIONS (5)
  - HYPERTHYROIDISM [None]
  - INFERTILITY FEMALE [None]
  - MOOD SWINGS [None]
  - NAUSEA [None]
  - TREMOR [None]
